FAERS Safety Report 6115251-8 (Version None)
Quarter: 2009Q1

REPORT INFORMATION
  Report Type: 
  Country: None (occurrence: None)
  Receive Date: 20090313
  Receipt Date: 20090304
  Transmission Date: 20090719
  Serious: Yes (Hospitalization, Other)
  Sender: FDA-Public Use
  Company Number: TR-MERCK-0903TUR00001

PATIENT
  Age: 45 Year
  Sex: Female

DRUGS (3)
  1. FOSAMAX [Suspect]
     Indication: OSTEOPOROSIS
     Route: 048
  2. SALMETEROL [Concomitant]
     Indication: ASTHMA
  3. FLUTICASONE [Concomitant]
     Indication: ASTHMA

REACTIONS (1)
  - ASTHMA [None]
